FAERS Safety Report 16705936 (Version 1)
Quarter: 2019Q3

REPORT INFORMATION
  Report Type: Spontaneous
  Country: BG (occurrence: BG)
  Receive Date: 20190815
  Receipt Date: 20190815
  Transmission Date: 20191004
  Serious: Yes (Life-Threatening, Hospitalization, Other)
  Sender: FDA-Public Use
  Company Number: BG-GLAXOSMITHKLINE-BG2019147473

PATIENT
  Age: 10 Year
  Sex: Female

DRUGS (11)
  1. CEFTRIAXONE. [Concomitant]
     Active Substance: CEFTRIAXONE
     Indication: RESPIRATORY TRACT INFECTION
     Dosage: UNK
  2. COORDINAX [Interacting]
     Active Substance: CISAPRIDE
     Indication: ABDOMINAL PAIN UPPER
     Dosage: UNK, DAILY
     Route: 048
     Dates: end: 20120115
  3. XYZAL [Concomitant]
     Active Substance: LEVOCETIRIZINE DIHYDROCHLORIDE
     Indication: HYPERSENSITIVITY
     Dosage: 1 TABLET DAILY
     Route: 048
  4. KLACID [Interacting]
     Active Substance: CLARITHROMYCIN
     Indication: RESPIRATORY TRACT INFECTION
     Dosage: UNK
     Route: 048
     Dates: start: 201201, end: 20120115
  5. DIMEX SYRUP [Interacting]
     Active Substance: AMMONIUM CHLORIDE\DIPHENHYDRAMINE HYDROCHLORIDE
     Indication: COUGH
     Dosage: 1 BOTTLE FOR 3 DAYS
     Route: 048
     Dates: start: 201201, end: 20120115
  6. POTASSIUM GLUCONATE [Concomitant]
     Active Substance: POTASSIUM GLUCONATE
     Indication: HYPERSENSITIVITY
     Dosage: UNK
     Route: 065
  7. CALCIUM GLUCONATE. [Concomitant]
     Active Substance: CALCIUM GLUCONATE
     Indication: PRODUCT USED FOR UNKNOWN INDICATION
     Dosage: UNK
     Route: 065
  8. THEOPHYLLINE [Interacting]
     Active Substance: THEOPHYLLINE ANHYDROUS
     Indication: RESPIRATORY TRACT INFECTION
     Dosage: 150 MG DAILY
     Route: 048
     Dates: start: 201201, end: 20120115
  9. OMEPRAZOLE. [Interacting]
     Active Substance: OMEPRAZOLE
     Indication: ABDOMINAL PAIN UPPER
     Dosage: UNK, DAILY
     Route: 048
     Dates: start: 2012, end: 20120115
  10. VENTOLIN [Suspect]
     Active Substance: ALBUTEROL SULFATE
     Indication: RESPIRATORY TRACT INFECTION
     Dosage: 1 DF, SINGLE
     Route: 048
  11. DIAZEPAM. [Concomitant]
     Active Substance: DIAZEPAM
     Indication: EPILEPSY
     Dosage: UNK
     Route: 065

REACTIONS (15)
  - Electrocardiogram QT prolonged [Recovered/Resolved]
  - Electrocardiogram QT prolonged [Recovered/Resolved]
  - Irregular breathing [Recovered/Resolved]
  - Palpitations [Recovered/Resolved]
  - Heart rate increased [Recovered/Resolved]
  - Nodal rhythm [Recovered/Resolved]
  - Drug interaction [Recovered/Resolved]
  - Apnoea [Recovered/Resolved]
  - Breath sounds abnormal [Recovered/Resolved]
  - Cardio-respiratory arrest [Recovered/Resolved]
  - Atrioventricular block [Recovered/Resolved]
  - Hypopnoea [Recovered/Resolved]
  - Epilepsy [Recovered/Resolved]
  - Arrhythmia [Recovered/Resolved]
  - Respiratory rate increased [Recovered/Resolved]

NARRATIVE: CASE EVENT DATE: 20120115
